FAERS Safety Report 8281647 (Version 2)
Quarter: 2012Q4

REPORT INFORMATION
  Report Type: 
  Country: US (occurrence: US)
  Receive Date: 20111209
  Receipt Date: 20120921
  Transmission Date: 20130627
  Serious: Yes (Hospitalization)
  Sender: FDA-Public Use
  Company Number: US-US-EMD SERONO, INC.-7099295

PATIENT
  Age: 54 Year
  Sex: Female
  Weight: 61 kg

DRUGS (6)
  1. REBIF [Suspect]
     Indication: MULTIPLE SCLEROSIS
     Route: 058
     Dates: start: 20110531, end: 20111024
  2. LEVOXYL [Concomitant]
     Indication: HYPOTHYROIDISM
  3. FLOMAX [Concomitant]
     Indication: BLADDER DYSFUNCTION
  4. INDERAL [Concomitant]
     Indication: ESSENTIAL TREMOR
  5. BACLOFEN [Concomitant]
     Indication: MULTIPLE SCLEROSIS
  6. ZANAFLEX [Concomitant]
     Indication: MUSCLE SPASMS

REACTIONS (6)
  - Cardiac failure congestive [Unknown]
  - Glomerulonephritis minimal lesion [Unknown]
  - Laboratory test abnormal [Unknown]
  - Thyroid function test abnormal [Unknown]
  - White blood cell count decreased [Unknown]
  - Platelet count decreased [Unknown]
